FAERS Safety Report 22250091 (Version 6)
Quarter: 2023Q2

REPORT INFORMATION
  Report Type: Spontaneous
  Country: FR (occurrence: FR)
  Receive Date: 20230425
  Receipt Date: 20230609
  Transmission Date: 20230722
  Serious: No
  Sender: FDA-Public Use
  Company Number: FR-JNJFOC-20230408371

PATIENT
  Sex: Female

DRUGS (1)
  1. SIMPONI [Suspect]
     Active Substance: GOLIMUMAB
     Indication: Product used for unknown indication
     Dosage: STRENGTH: 50.00 MG / 0.50 ML
     Route: 058

REACTIONS (6)
  - Device issue [Unknown]
  - Product dose omission issue [Unknown]
  - Product colour issue [Unknown]
  - Peripheral swelling [Unknown]
  - Feeling hot [Unknown]
  - Haematoma [Unknown]
